FAERS Safety Report 5267178-1 (Version None)
Quarter: 2007Q1

REPORT INFORMATION
  Report Type: 
  Country: None (occurrence: None)
  Receive Date: 20070316
  Receipt Date: 20070313
  Transmission Date: 20070707
  Serious: Yes (Life-Threatening, Hospitalization)
  Sender: FDA-Public Use
  Company Number: AU-PURDUE-USA_2007_0026746

PATIENT
  Age: 81 Year
  Sex: Female

DRUGS (2)
  1. OXYCONTIN [Suspect]
     Indication: BACK PAIN
     Dosage: 100 MG, DAILY
     Route: 048
  2. CALTRATE [Concomitant]
     Indication: OSTEOPOROSIS

REACTIONS (3)
  - AMNESIA [None]
  - CARDIAC ARREST [None]
  - RASH [None]
